FAERS Safety Report 5937908-1 (Version None)
Quarter: 2008Q4

REPORT INFORMATION
  Report Type: 
  Country: None (occurrence: None)
  Receive Date: 20081031
  Receipt Date: 20081022
  Transmission Date: 20090506
  Serious: Yes (Hospitalization, Disabling, Other)
  Sender: FDA-Public Use
  Company Number: KR-ASTRAZENECA-2008AP06605

PATIENT
  Age: 75 Year
  Sex: Female

DRUGS (4)
  1. IRESSA [Suspect]
     Indication: NON-SMALL CELL LUNG CANCER
     Route: 048
     Dates: start: 20071013, end: 20080808
  2. AZELASTINE HCL [Concomitant]
     Indication: RASH
     Dates: start: 20071219, end: 20080811
  3. TRIMEBUTINE [Concomitant]
     Indication: GASTROINTESTINAL MOTILITY DISORDER
     Dates: start: 20080719, end: 20080812
  4. AMBROXOL [Concomitant]
     Indication: PRODUCTIVE COUGH
     Route: 048
     Dates: start: 20071206, end: 20080812

REACTIONS (1)
  - SUBDURAL HAEMORRHAGE [None]
